FAERS Safety Report 21091258 (Version 1)
Quarter: 2022Q3

REPORT INFORMATION
  Report Type: Spontaneous
  Country: NZ (occurrence: NZ)
  Receive Date: 20220716
  Receipt Date: 20220716
  Transmission Date: 20221027
  Serious: Yes (Other)
  Sender: FDA-Public Use
  Company Number: NZ-TEVA-2022-NZ-2054568

PATIENT
  Sex: Female

DRUGS (1)
  1. TRAMADOL [Suspect]
     Active Substance: TRAMADOL
     Indication: Product used for unknown indication
     Route: 042

REACTIONS (3)
  - Generalised tonic-clonic seizure [Unknown]
  - Coma [Unknown]
  - Near death experience [Unknown]
